FAERS Safety Report 9861540 (Version 2)
Quarter: 2014Q1

REPORT INFORMATION
  Report Type: Spontaneous
  Country: SG (occurrence: SG)
  Receive Date: 20140203
  Receipt Date: 20140203
  Transmission Date: 20141002
  Serious: Yes (Other)
  Sender: FDA-Public Use
  Company Number: SG-ROCHE-1317981

PATIENT
  Age: 52 Year
  Sex: Male
  Weight: 73 kg

DRUGS (2)
  1. PEGASYS [Suspect]
     Indication: HEPATITIS C
     Route: 058
     Dates: start: 20120416, end: 20120827
  2. RIBAVIRIN [Concomitant]
     Indication: HEPATITIS C
     Dosage: 600 AND 400
     Route: 048
     Dates: start: 20120416, end: 20120827

REACTIONS (1)
  - Nephrotic syndrome [Recovered/Resolved]
